FAERS Safety Report 5211803-8 (Version None)
Quarter: 2007Q1

REPORT INFORMATION
  Report Type: 
  Country: None (occurrence: None)
  Receive Date: 20070116
  Receipt Date: 20070116
  Transmission Date: 20070707
  Serious: Yes (Hospitalization)
  Sender: FDA-Public Use
  Company Number: None

PATIENT
  Age: 63 Year
  Sex: Female
  Weight: 70.7611 kg

DRUGS (1)
  1. ARIMIDEX [Suspect]
     Indication: BREAST CANCER RECURRENT
     Dosage: 1 MG DAILY PO
     Route: 048
     Dates: start: 20060511, end: 20061024

REACTIONS (6)
  - DRUG TOXICITY [None]
  - HAEMOTHORAX [None]
  - MALIGNANT NEOPLASM PROGRESSION [None]
  - PERICARDIAL EFFUSION [None]
  - PLEURAL DISORDER [None]
  - PLEURAL EFFUSION [None]
